FAERS Safety Report 10191158 (Version 2)
Quarter: 2014Q2

REPORT INFORMATION
  Report Type: Spontaneous
  Country: US (occurrence: None)
  Receive Date: 20140521
  Receipt Date: 20140602
  Transmission Date: 20141212
  Serious: Yes (Hospitalization, Other)
  Sender: FDA-Public Use
  Company Number: 2014-US-005799

PATIENT
  Age: 43 Year
  Sex: Female

DRUGS (4)
  1. XYREM [Suspect]
     Indication: NARCOLEPSY
     Route: 048
     Dates: start: 200411
  2. XYREM [Suspect]
     Indication: CATAPLEXY
     Route: 048
     Dates: start: 200411
  3. XYREM [Suspect]
     Indication: HYPERSOMNIA
     Route: 048
     Dates: start: 200411
  4. XYREM [Suspect]
     Indication: SLEEP APNOEA SYNDROME
     Route: 048
     Dates: start: 200411

REACTIONS (15)
  - Arrhythmia [None]
  - Hypertension [None]
  - Cardiac pacemaker insertion [None]
  - Insomnia [None]
  - Fatigue [None]
  - Hangover [None]
  - Headache [None]
  - Drug ineffective [None]
  - Supraventricular extrasystoles [None]
  - Ventricular extrasystoles [None]
  - Chronic obstructive pulmonary disease [None]
  - Heart valve incompetence [None]
  - Syncope [None]
  - Dizziness [None]
  - Pulmonary hypertension [None]
